FAERS Safety Report 16817240 (Version 1)
Quarter: 2019Q4

REPORT INFORMATION
  Report Type: Spontaneous
  Country: US (occurrence: US)
  Receive Date: 20190917
  Receipt Date: 20190917
  Transmission Date: 20200122
  Serious: Yes (Disabling)
  Sender: FDA-Public Use
  Company Number: None

PATIENT
  Age: 59 Year
  Sex: Female
  Weight: 56.25 kg

DRUGS (6)
  1. CIPROFLOXACIN. [Suspect]
     Active Substance: CIPROFLOXACIN
     Indication: URINARY TRACT INFECTION
     Dosage: ?          QUANTITY:1 TABLET(S);?
     Route: 048
     Dates: start: 20180823, end: 20180826
  2. MAGNESIUM [Concomitant]
     Active Substance: MAGNESIUM
  3. BIEST CREAM [Concomitant]
     Active Substance: ESTRADIOL\ESTRIOL
  4. VITAMIN B12 [Concomitant]
     Active Substance: CYANOCOBALAMIN
  5. VITAMIN D [Concomitant]
     Active Substance: VITAMIN D NOS
  6. PREMARIN HORMONE CREAM [Concomitant]

REACTIONS (16)
  - Pain [None]
  - Palpitations [None]
  - Muscle twitching [None]
  - Eye pain [None]
  - Insomnia [None]
  - Abdominal pain upper [None]
  - Fibromyalgia [None]
  - Anxiety [None]
  - Depression [None]
  - Feeling abnormal [None]
  - Night sweats [None]
  - Hyperhidrosis [None]
  - Nausea [None]
  - Arthralgia [None]
  - Burning sensation [None]
  - Paraesthesia [None]

NARRATIVE: CASE EVENT DATE: 20180902
